FAERS Safety Report 15564772 (Version 1)
Quarter: 2018Q4

REPORT INFORMATION
  Report Type: Spontaneous
  Country: US (occurrence: US)
  Receive Date: 20181029
  Receipt Date: 20181029
  Transmission Date: 20190205
  Serious: No
  Sender: FDA-Public Use
  Company Number: None

PATIENT
  Age: 68 Year
  Sex: Female
  Weight: 53.55 kg

DRUGS (5)
  1. ALBUTEROL. [Concomitant]
     Active Substance: ALBUTEROL
  2. ETHAMBUTOL [Concomitant]
     Active Substance: ETHAMBUTOL HYDROCHLORIDE
  3. AMIKACIN SULFATE INHALED WITH SALINE [Suspect]
     Active Substance: AMIKACIN SULFATE
     Indication: LUNG INFECTION
     Dosage: ?          QUANTITY:60 INJECTION(S);?
     Route: 055
  4. RIFANPIN [Concomitant]
  5. AZITHROMYCIN ANHYDROUS. [Concomitant]
     Active Substance: AZITHROMYCIN ANHYDROUS

REACTIONS (2)
  - Dysphonia [None]
  - Pharyngitis [None]

NARRATIVE: CASE EVENT DATE: 20181018
